FAERS Safety Report 22820741 (Version 4)
Quarter: 2023Q4

REPORT INFORMATION
  Report Type: Report from Study
  Country: US (occurrence: US)
  Receive Date: 20230814
  Receipt Date: 20231020
  Transmission Date: 20240110
  Serious: Yes (Hospitalization)
  Sender: FDA-Public Use
  Company Number: US-GILEAD-2023-0639288

PATIENT
  Age: 76 Year
  Sex: Male
  Weight: 93 kg

DRUGS (70)
  1. AXICABTAGENE CILOLEUCEL [Suspect]
     Active Substance: AXICABTAGENE CILOLEUCEL
     Indication: B-cell lymphoma
     Dosage: 68
     Route: 042
     Dates: start: 20230508, end: 20230508
  2. FLUDARABINE [Suspect]
     Active Substance: FLUDARABINE PHOSPHATE
     Indication: B-cell lymphoma
     Dosage: 30
     Route: 065
     Dates: start: 20230404, end: 20230504
  3. FLUDARABINE [Suspect]
     Active Substance: FLUDARABINE PHOSPHATE
     Dosage: 30
     Route: 065
     Dates: start: 20230503, end: 20230503
  4. FLUDARABINE [Suspect]
     Active Substance: FLUDARABINE PHOSPHATE
     Dosage: 30
     Route: 065
     Dates: start: 20230505, end: 20230505
  5. CYCLOPHOSPHAMIDE [Suspect]
     Active Substance: CYCLOPHOSPHAMIDE
     Indication: B-cell lymphoma
     Dosage: 500
     Route: 065
     Dates: start: 20230503, end: 20230505
  6. CYCLOPHOSPHAMIDE [Suspect]
     Active Substance: CYCLOPHOSPHAMIDE
     Dosage: 500
     Route: 065
     Dates: start: 20230503, end: 20230503
  7. CYCLOPHOSPHAMIDE [Suspect]
     Active Substance: CYCLOPHOSPHAMIDE
     Dosage: 500
     Route: 065
     Dates: start: 20230504, end: 20230504
  8. CYCLOPHOSPHAMIDE [Suspect]
     Active Substance: CYCLOPHOSPHAMIDE
     Dosage: 500
     Route: 065
     Dates: start: 20230505, end: 20230505
  9. ASPIRIN [Concomitant]
     Active Substance: ASPIRIN
     Dosage: 81,MG,DAILY
     Route: 048
     Dates: start: 20200308
  10. METFORMIN [Concomitant]
     Active Substance: METFORMIN HYDROCHLORIDE
     Dosage: 500,MG,TWICE DAILY
     Route: 048
     Dates: start: 20200308
  11. METFORMIN [Concomitant]
     Active Substance: METFORMIN HYDROCHLORIDE
     Dosage: 500,MG,TWICE DAILY
     Route: 048
     Dates: start: 20200308, end: 20230810
  12. METFORMIN [Concomitant]
     Active Substance: METFORMIN HYDROCHLORIDE
     Dosage: 500,MG,TWICE DAILY
     Route: 048
     Dates: start: 20230530
  13. SYNTHROID [Concomitant]
     Active Substance: LEVOTHYROXINE SODIUM
     Dosage: 125,UG,DAILY
     Route: 048
     Dates: start: 20200308
  14. SYNTHROID [Concomitant]
     Active Substance: LEVOTHYROXINE SODIUM
     Dosage: 125,UG,DAILY
     Route: 048
     Dates: start: 20230523
  15. CRESTOR [Concomitant]
     Active Substance: ROSUVASTATIN CALCIUM
     Dosage: 20,MG,DAILY
     Route: 048
     Dates: start: 20220730
  16. CRESTOR [Concomitant]
     Active Substance: ROSUVASTATIN CALCIUM
     Dosage: 20,MG,DAILY
     Route: 048
     Dates: start: 20201125, end: 20230806
  17. DIOVAN [Concomitant]
     Active Substance: VALSARTAN
     Dosage: 40,MG,DAILY
     Route: 048
     Dates: start: 20220730
  18. DIOVAN [Concomitant]
     Active Substance: VALSARTAN
     Dosage: 40,MG,DAILY
     Route: 048
     Dates: start: 20220730, end: 20230803
  19. ACETAMINOPHEN [Concomitant]
     Active Substance: ACETAMINOPHEN
     Dosage: 650,MG,OTHER
     Route: 048
     Dates: start: 20230511
  20. CEFEPIME [Concomitant]
     Active Substance: CEFEPIME HYDROCHLORIDE
     Dosage: 2000,MG,OTHER
     Route: 042
     Dates: start: 20230511
  21. CEFEPIME [Concomitant]
     Active Substance: CEFEPIME HYDROCHLORIDE
     Dosage: 2000,MG,THREE TIMES DAILY
     Route: 042
     Dates: start: 20230803, end: 20230804
  22. SODIUM PHOSPHATES [SODIUM PHOSPHATE] [Concomitant]
     Dosage: 15,OTHER,OTHER
     Route: 042
     Dates: start: 20230512
  23. POTASSIUM CHLORIDE [Concomitant]
     Active Substance: POTASSIUM CHLORIDE
     Dosage: 40,OTHER,AS NECESSARY
     Route: 042
     Dates: start: 20230805, end: 20230812
  24. POTASSIUM CHLORIDE [Concomitant]
     Active Substance: POTASSIUM CHLORIDE
     Dosage: 40,OTHER,AS NECESSARY
     Route: 042
     Dates: start: 20230803, end: 20230812
  25. TYLENOL [Concomitant]
     Active Substance: ACETAMINOPHEN
     Dosage: 650,MG,AS NECESSARY
     Route: 048
     Dates: start: 20230905, end: 20230905
  26. TYLENOL [Concomitant]
     Active Substance: ACETAMINOPHEN
     Dosage: 650,MG,AS NECESSARY
     Route: 048
     Dates: start: 20230803, end: 20230812
  27. TYLENOL [Concomitant]
     Active Substance: ACETAMINOPHEN
     Dosage: 650,MG,AS NECESSARY
     Route: 048
     Dates: start: 20230803, end: 20230803
  28. VANCOMYCIN [Concomitant]
     Active Substance: VANCOMYCIN
     Dosage: 1000,MG,TWICE DAILY
     Route: 042
     Dates: start: 20230905, end: 20230905
  29. VANCOMYCIN [Concomitant]
     Active Substance: VANCOMYCIN
     Dosage: 1000,MG,TWICE DAILY
     Route: 042
     Dates: start: 20230804, end: 20230810
  30. VANCOMYCIN [Concomitant]
     Active Substance: VANCOMYCIN
     Dosage: 1,200,MG,TWICE DAILY
     Route: 042
     Dates: start: 20230806, end: 20230807
  31. COLACE [Concomitant]
     Active Substance: DOCUSATE SODIUM
     Dosage: 100,MG,AS NECESSARY
     Route: 048
     Dates: start: 20230505, end: 20230812
  32. DULCOLAX (BISACODYL) [Concomitant]
     Active Substance: BISACODYL
     Dosage: 10,MG,AS NECESSARY
     Route: 048
     Dates: start: 20230512, end: 20230812
  33. ACYCLOVIR [Concomitant]
     Active Substance: ACYCLOVIR
     Dosage: 400,MG,TWICE DAILY
     Route: 048
     Dates: start: 20230523
  34. OMEPRAZOLE [Concomitant]
     Active Substance: OMEPRAZOLE
     Dosage: 40,MG,TWICE DAILY
     Route: 048
     Dates: start: 20230523
  35. MYCELEX [Concomitant]
     Active Substance: CLOTRIMAZOLE
     Dosage: 10,MG,OTHER
     Route: 050
     Dates: start: 20230803, end: 20230811
  36. INSULIN LISPRO [Concomitant]
     Active Substance: INSULIN LISPRO
     Dosage: 2,OTHER,FOUR TIMES DAILY
     Route: 058
     Dates: start: 20230803, end: 20230811
  37. MAGNESIUM SULFATE [Concomitant]
     Active Substance: MAGNESIUM SULFATE\MAGNESIUM SULFATE HEPTAHYDRATE
     Dosage: 2,G,AS NECESSARY
     Route: 042
     Dates: start: 20230803, end: 20230803
  38. MYCOSTATIN [Concomitant]
     Active Substance: NYSTATIN
     Dosage: 500,000,OTHER,FOUR TIMES DAILY
     Route: 050
     Dates: start: 20230803, end: 20230812
  39. SODIUM FLUORIDE\SODIUM MONOFLUOROPHOSPHATE [Concomitant]
     Active Substance: SODIUM FLUORIDE\SODIUM MONOFLUOROPHOSPHATE
     Dosage: 15,ML,OTHER
     Route: 050
     Dates: start: 20230803, end: 20230812
  40. ALBUTEROL SULFATE [Concomitant]
     Active Substance: ALBUTEROL SULFATE
     Dosage: 2,OTHER,FOUR TIMES DAILY
     Route: 055
     Dates: start: 20230804, end: 20230805
  41. CLINDAMYCIN [Concomitant]
     Active Substance: CLINDAMYCIN
     Dosage: 900,MG,THREE TIMES DAILY
     Route: 042
     Dates: start: 20230804, end: 20230805
  42. CRESEMBA [Concomitant]
     Active Substance: ISAVUCONAZONIUM SULFATE
     Dosage: 372,MG,THREE TIMES DAILY
     Route: 042
     Dates: start: 20230804, end: 20230805
  43. MEROPENEM [Concomitant]
     Active Substance: MEROPENEM
     Dosage: 1,G,THREE TIMES DAILY
     Route: 042
     Dates: start: 20230804
  44. GLUCOPHAGE XR [Concomitant]
     Active Substance: METFORMIN HYDROCHLORIDE
     Dosage: 500,MG,DAILY
     Route: 048
     Dates: start: 20230804, end: 20230804
  45. BACTRIM DS [Concomitant]
     Active Substance: SULFAMETHOXAZOLE\TRIMETHOPRIM
     Dosage: 1,OTHER,OTHER
     Route: 048
     Dates: start: 20230804
  46. BENADRYL [Concomitant]
     Active Substance: DIPHENHYDRAMINE HYDROCHLORIDE
     Dosage: 25,MG,OTHER
     Route: 042
     Dates: start: 20230805, end: 20230805
  47. HYDROCORTISONE SODIUM SUCCINATE [Concomitant]
     Active Substance: HYDROCORTISONE SODIUM SUCCINATE
     Dosage: 25,MG,OTHER
     Route: 042
     Dates: start: 20230805, end: 20230805
  48. PRIVIGEN [Concomitant]
     Active Substance: HUMAN IMMUNOGLOBULIN G
     Dosage: 35,G,OTHER
     Route: 042
     Dates: start: 20230805, end: 20230805
  49. OFIRMEV [Concomitant]
     Active Substance: ACETAMINOPHEN
     Dosage: 500,MG,ONCE
     Route: 042
     Dates: start: 20230805, end: 20230805
  50. HUMAN RED BLOOD CELL [Concomitant]
     Active Substance: HUMAN RED BLOOD CELL
     Dosage: 321,ML,ONCE
     Route: 042
     Dates: start: 20230805, end: 20230805
  51. HUMAN RED BLOOD CELL [Concomitant]
     Active Substance: HUMAN RED BLOOD CELL
     Dosage: 325,ML,ONCE
     Route: 042
     Dates: start: 20230806, end: 20230806
  52. EPHEDRINE [Concomitant]
     Active Substance: EPHEDRINE
     Dosage: 5,MG,AS NECESSARY
     Route: 042
     Dates: start: 20230806, end: 20230806
  53. FAMOTIDINE [Concomitant]
     Active Substance: FAMOTIDINE
     Dosage: 20,MG,AS NECESSARY
     Route: 042
     Dates: start: 20230806, end: 20230806
  54. FENTANYL CITRATE [Concomitant]
     Active Substance: FENTANYL CITRATE
     Dosage: 75,UG,AS NECESSARY
     Route: 042
     Dates: start: 20230806, end: 20230806
  55. NIVESTYM [FILGRASTIM AAFI] [Concomitant]
     Dosage: 480,UG,DAILY
     Route: 058
     Dates: start: 20230806, end: 20230806
  56. NORCO [Concomitant]
     Active Substance: ACETAMINOPHEN\HYDROCODONE BITARTRATE
     Dosage: 1,OTHER,AS NECESSARY
     Route: 048
     Dates: start: 20230806, end: 20230810
  57. LACTATED RINGERS SOLUTION [Concomitant]
     Active Substance: CALCIUM CHLORIDE\POTASSIUM CHLORIDE\SODIUM CHLORIDE\SODIUM LACTATE
     Dosage: 100,ML,ONCE
     Route: 042
     Dates: start: 20230806, end: 20230806
  58. LIDOCAINE [Concomitant]
     Active Substance: LIDOCAINE
     Dosage: 60,MG,ONCE
     Route: 042
     Dates: start: 20230806, end: 20230806
  59. ONDANSETRON [Concomitant]
     Active Substance: ONDANSETRON
     Dosage: 4,MG,ONCE
     Route: 042
     Dates: start: 20230806, end: 20230806
  60. PHENYLEPHRINE [Concomitant]
     Active Substance: PHENYLEPHRINE HYDROCHLORIDE
     Dosage: 250,ML,AS NECESSARY
     Route: 042
     Dates: start: 20230806, end: 20230806
  61. PLATELETS [Concomitant]
     Active Substance: HUMAN PLATELET, ALLOGENIC
     Dosage: 217,ML,ONCE
     Route: 042
     Dates: start: 20230806, end: 20230806
  62. PLATELETS [Concomitant]
     Active Substance: HUMAN PLATELET, ALLOGENIC
     Dosage: 267,ML,ONCE
     Route: 042
     Dates: start: 20230807, end: 20230807
  63. PLATELETS [Concomitant]
     Active Substance: HUMAN PLATELET, ALLOGENIC
     Dosage: 331.67,ML,ONCE
     Route: 042
     Dates: start: 20230808, end: 20230808
  64. PLATELETS [Concomitant]
     Active Substance: HUMAN PLATELET, ALLOGENIC
     Dosage: 309.58,ML,ONCE
     Route: 042
     Dates: start: 20230809, end: 20230809
  65. PLATELETS [Concomitant]
     Active Substance: HUMAN PLATELET, ALLOGENIC
     Dosage: 266,ML,ONCE
     Route: 042
     Dates: start: 20230810, end: 20230810
  66. PLATELETS [Concomitant]
     Active Substance: HUMAN PLATELET, ALLOGENIC
     Dosage: 234,ML,ONCE
     Route: 042
     Dates: start: 20230811, end: 20230811
  67. PLATELETS [Concomitant]
     Active Substance: HUMAN PLATELET, ALLOGENIC
     Dosage: 400,ML,ONCE
     Route: 042
     Dates: start: 20230812, end: 20230812
  68. PROPOFOL [Concomitant]
     Active Substance: PROPOFOL
     Dosage: 44.1,ML,ONCE
     Route: 042
     Dates: start: 20230806, end: 20230806
  69. FUROSEMIDE [Concomitant]
     Active Substance: FUROSEMIDE
     Dosage: 20,MG,DAILY
     Route: 042
     Dates: start: 20230809, end: 20230811
  70. HYDROCORTISONE [Concomitant]
     Active Substance: HYDROCORTISONE
     Dosage: 1,OTHER,TWICE DAILY
     Route: 061
     Dates: start: 20230812, end: 20230812

REACTIONS (3)
  - Ecthyma [Recovered/Resolved]
  - Pyrexia [Recovered/Resolved]
  - Febrile neutropenia [Recovered/Resolved]

NARRATIVE: CASE EVENT DATE: 20230803
